FAERS Safety Report 6265783-7 (Version None)
Quarter: 2009Q3

REPORT INFORMATION
  Report Type: 
  Country: None (occurrence: None)
  Receive Date: 20090708
  Receipt Date: 20090708
  Transmission Date: 20100115
  Serious: Yes (Other)
  Sender: FDA-Public Use
  Company Number: None

PATIENT
  Sex: Female
  Weight: 73.0291 kg

DRUGS (1)
  1. CIPROFLOXACIN [Suspect]
     Indication: PYELONEPHRITIS
     Dosage: 500MG BID PO
     Route: 048
     Dates: start: 20090621, end: 20090701

REACTIONS (4)
  - ARTHRALGIA [None]
  - JOINT CREPITATION [None]
  - OEDEMA PERIPHERAL [None]
  - TENDONITIS [None]
